FAERS Safety Report 21628923 (Version 3)
Quarter: 2023Q2

REPORT INFORMATION
  Report Type: Spontaneous
  Country: JP (occurrence: JP)
  Receive Date: 20221122
  Receipt Date: 20230419
  Transmission Date: 20230722
  Serious: Yes (Death)
  Sender: FDA-Public Use
  Company Number: JP-MSD-M2022-48754

PATIENT
  Age: 82 Year
  Sex: Female
  Weight: 36 kg

DRUGS (1)
  1. LAGEVRIO [Suspect]
     Active Substance: MOLNUPIRAVIR
     Indication: COVID-19 treatment
     Dosage: 800 MILLIGRAM, BID
     Route: 048
     Dates: start: 20221102, end: 20221106

REACTIONS (2)
  - Dysphagia [Fatal]
  - COVID-19 [Fatal]

NARRATIVE: CASE EVENT DATE: 20221101
